FAERS Safety Report 8119851-5 (Version None)
Quarter: 2012Q1

REPORT INFORMATION
  Report Type: 
  Country: None (occurrence: None)
  Receive Date: 20120206
  Receipt Date: 20120206
  Transmission Date: 20120608
  Serious: Yes (Hospitalization)
  Sender: FDA-Public Use
  Company Number: None

PATIENT
  Age: 70 Year
  Sex: Female
  Weight: 75.6 kg

DRUGS (1)
  1. NEXAVAR [Suspect]
     Indication: HEPATIC NEOPLASM MALIGNANT
     Dosage: 400 MG TWICE DAILY P.O.
     Route: 048
     Dates: start: 20120114, end: 20120123

REACTIONS (5)
  - FACE INJURY [None]
  - AMMONIA INCREASED [None]
  - BODY TEMPERATURE INCREASED [None]
  - FALL [None]
  - CONFUSIONAL STATE [None]
